FAERS Safety Report 20680785 (Version 1)
Quarter: 2022Q2

REPORT INFORMATION
  Report Type: Spontaneous
  Country: US (occurrence: None)
  Receive Date: 20220406
  Receipt Date: 20220406
  Transmission Date: 20220721
  Serious: Yes (Hospitalization)
  Sender: FDA-Public Use
  Company Number: US-ROCHE-3065632

PATIENT

DRUGS (1)
  1. RITUXIMAB [Suspect]
     Active Substance: RITUXIMAB
     Indication: Relapsing-remitting multiple sclerosis
     Dosage: LAST DOSE WAS 1G IN SEPTEMBER 2021
     Route: 065
     Dates: start: 2016

REACTIONS (2)
  - Organising pneumonia [Unknown]
  - Off label use [Unknown]
